FAERS Safety Report 14023780 (Version 1)
Quarter: 2017Q3

REPORT INFORMATION
  Report Type: Spontaneous
  Country: US (occurrence: US)
  Receive Date: 20170928
  Receipt Date: 20170928
  Transmission Date: 20171128
  Serious: No
  Sender: FDA-Public Use
  Company Number: US-SA-2017SA033532

PATIENT
  Age: 47 Year
  Sex: Male

DRUGS (7)
  1. CEFUROXIME AXETIL. [Concomitant]
     Active Substance: CEFUROXIME AXETIL
  2. CETIRIZINE HYDROCHLORIDE. [Concomitant]
     Active Substance: CETIRIZINE HYDROCHLORIDE
  3. FLOMAX [Concomitant]
     Active Substance: TAMSULOSIN HYDROCHLORIDE
  4. MYRBETRIQ [Concomitant]
     Active Substance: MIRABEGRON
  5. CLARITIN [Concomitant]
     Active Substance: LORATADINE
  6. AMPYRA [Concomitant]
     Active Substance: DALFAMPRIDINE
  7. AUBAGIO [Suspect]
     Active Substance: TERIFLUNOMIDE
     Indication: MULTIPLE SCLEROSIS
     Route: 048

REACTIONS (1)
  - Fall [Unknown]
